FAERS Safety Report 6610775-9 (Version None)
Quarter: 2010Q1

REPORT INFORMATION
  Report Type: 
  Country: None (occurrence: None)
  Receive Date: 20100302
  Receipt Date: 20100222
  Transmission Date: 20100710
  Serious: Yes (Other)
  Sender: FDA-Public Use
  Company Number: B0635672A

PATIENT
  Sex: Female

DRUGS (11)
  1. SEROXAT [Suspect]
     Indication: ANXIETY
     Dosage: 40MG PER DAY
     Route: 048
  2. TAMOXIFEN CITRATE [Suspect]
     Indication: DRUG USE FOR UNKNOWN INDICATION
     Route: 065
  3. LEVOTHYROXINE SODIUM [Concomitant]
  4. BRINZOLAMIDE [Concomitant]
     Route: 047
  5. LATANOPROST [Concomitant]
     Route: 047
  6. LANSOPRAZOLE [Concomitant]
  7. BUDESONIDE [Concomitant]
  8. SIMVASTATIN [Concomitant]
  9. DICLOFENAC [Concomitant]
  10. PLAQUENIL [Concomitant]
     Route: 065
  11. FORMOTEROL [Concomitant]

REACTIONS (8)
  - BLOOD URINE PRESENT [None]
  - BREAST CANCER FEMALE [None]
  - DRUG INTERACTION [None]
  - DRUG WITHDRAWAL SYNDROME [None]
  - HAEMATURIA [None]
  - HAEMOPTYSIS [None]
  - JOINT SWELLING [None]
  - STRESS URINARY INCONTINENCE [None]
